FAERS Safety Report 18001335 (Version 5)
Quarter: 2021Q1

REPORT INFORMATION
  Report Type: Report from Study
  Country: CL (occurrence: CL)
  Receive Date: 20200709
  Receipt Date: 20210218
  Transmission Date: 20210419
  Serious: Yes (Other)
  Sender: FDA-Public Use
  Company Number: PHHY2019CL196822

PATIENT
  Age: 41 Year
  Sex: Female

DRUGS (3)
  1. KISQALI [Suspect]
     Active Substance: RIBOCICLIB
     Dosage: 600 MG, QD
     Route: 048
     Dates: start: 20200213
  2. KISQALI [Suspect]
     Active Substance: RIBOCICLIB
     Indication: BREAST CANCER
     Dosage: 600 MG, QD
     Route: 048
     Dates: start: 20190802
  3. KISQALI [Suspect]
     Active Substance: RIBOCICLIB
     Dosage: UNK (ON 28?DEC ?????)
     Route: 065

REACTIONS (19)
  - Red blood cell sedimentation rate increased [Unknown]
  - Electrocardiogram PR shortened [Unknown]
  - Macrocytosis [Unknown]
  - Poikilocytosis [Unknown]
  - Mean cell haemoglobin increased [Unknown]
  - Red cell distribution width increased [Unknown]
  - Metastasis [Unknown]
  - Haematocrit decreased [Unknown]
  - Anisocytosis [Unknown]
  - Mean cell volume increased [Unknown]
  - Blood lactate dehydrogenase increased [Unknown]
  - Confusional state [Unknown]
  - Lymphocyte count decreased [Unknown]
  - Blood glucose increased [Unknown]
  - Red blood cell count decreased [Unknown]
  - Drug ineffective [Unknown]
  - Inappropriate schedule of product administration [Unknown]
  - White blood cell count decreased [Unknown]
  - Neutrophil count decreased [Unknown]

NARRATIVE: CASE EVENT DATE: 20190816
